FAERS Safety Report 16005586 (Version 1)
Quarter: 2019Q1

REPORT INFORMATION
  Report Type: Spontaneous
  Country: US (occurrence: US)
  Receive Date: 20190131
  Receipt Date: 20190131
  Transmission Date: 20190418
  Serious: No
  Sender: FDA-Public Use
  Company Number: None

PATIENT
  Age: 63 Year
  Sex: Male

DRUGS (1)
  1. TALTZ [Suspect]
     Active Substance: IXEKIZUMAB
     Indication: PSORIATIC ARTHROPATHY
     Dosage: OTHER
     Route: 058
     Dates: start: 201812

REACTIONS (5)
  - Memory impairment [None]
  - Swelling [None]
  - Nausea [None]
  - Product dose omission [None]
  - Injection site reaction [None]

NARRATIVE: CASE EVENT DATE: 20190130
